FAERS Safety Report 21493518 (Version 1)
Quarter: 2022Q4

REPORT INFORMATION
  Report Type: Spontaneous
  Country: US (occurrence: US)
  Receive Date: 20221021
  Receipt Date: 20221021
  Transmission Date: 20230112
  Serious: No
  Sender: FDA-Public Use
  Company Number: US-PFIZER INC-202201242179

PATIENT
  Age: 92 Year
  Sex: Female
  Weight: 45.36 kg

DRUGS (1)
  1. PAXLOVID [Suspect]
     Active Substance: NIRMATRELVIR\RITONAVIR
     Indication: COVID-19 treatment
     Dosage: 2X/DAY (TWICE DAILY)
     Dates: start: 20221018

REACTIONS (2)
  - Wrong technique in product usage process [Unknown]
  - Product size issue [Unknown]

NARRATIVE: CASE EVENT DATE: 20221018
